FAERS Safety Report 7395968 (Version 6)
Quarter: 2014Q4

REPORT INFORMATION
  Report Type: Spontaneous
  Country: AU (occurrence: AU)
  Receive Date: 20100521
  Receipt Date: 20141219
  Transmission Date: 20150529
  Serious: Yes (Other)
  Sender: FDA-Public Use
  Company Number: AU-PFIZER INC-2010058783

PATIENT
  Sex: Female

DRUGS (1)
  1. LYRICA [Suspect]
     Active Substance: PREGABALIN
     Indication: FIBROMYALGIA
     Dosage: UNK

REACTIONS (6)
  - Malaise [Unknown]
  - Suicidal ideation [Unknown]
  - Depression [Unknown]
  - Hallucination, visual [Unknown]
  - Crying [Unknown]
  - Dizziness [Unknown]
